FAERS Safety Report 8820108 (Version 1)
Quarter: 2012Q4

REPORT INFORMATION
  Report Type: 
  Country: US (occurrence: US)
  Receive Date: 20121001
  Receipt Date: 20121001
  Transmission Date: 20130627
  Serious: Yes (Other)
  Sender: FDA-Public Use
  Company Number: US-MERCK-1209USA007772

PATIENT
  Sex: Male

DRUGS (5)
  1. REBETOL [Suspect]
     Indication: HEPATITIS C
     Dosage: UNK
     Route: 048
     Dates: start: 20031001
  2. REBETOL [Suspect]
     Dosage: UNK
     Dates: start: 20111231
  3. VICTRELIS [Suspect]
     Indication: HEPATITIS C
     Dosage: UNK
     Dates: start: 20120203
  4. PEGINTRON [Suspect]
     Indication: HEPATITIS C
     Dosage: UNK
     Dates: start: 20031001
  5. PEGASYS [Concomitant]
     Indication: HEPATITIS C
     Dosage: UNK
     Dates: start: 20111231

REACTIONS (19)
  - Thyroid disorder [Unknown]
  - Thyroid disorder [Unknown]
  - Drug ineffective [Unknown]
  - Depression [Unknown]
  - Dry mouth [Unknown]
  - Haemoglobin decreased [Unknown]
  - White blood cell count decreased [Unknown]
  - Nervousness [Unknown]
  - Chest pain [Unknown]
  - Visual impairment [Unknown]
  - Panic attack [Unknown]
  - Back pain [Unknown]
  - Poor quality sleep [Unknown]
  - Pyrexia [Unknown]
  - Vitamin D decreased [Unknown]
  - Dysgeusia [Unknown]
  - Dizziness [Unknown]
  - Glossodynia [Unknown]
  - Glossodynia [Unknown]
